FAERS Safety Report 9129463 (Version 2)
Quarter: 2013Q4

REPORT INFORMATION
  Report Type: Report from Study
  Country: US (occurrence: US)
  Receive Date: 20130228
  Receipt Date: 20131209
  Transmission Date: 20140711
  Serious: Yes (Other)
  Sender: FDA-Public Use
  Company Number: US-ELI_LILLY_AND_COMPANY-US201110007844

PATIENT
  Age: 50 Year
  Sex: Female

DRUGS (6)
  1. TERIPARATIDE [Suspect]
     Indication: OSTEOPOROSIS POSTMENOPAUSAL
     Dosage: 20 UG, QD
     Route: 065
     Dates: start: 20111011
  2. TERIPARATIDE [Suspect]
     Dosage: 20 UG, QD
     Route: 065
  3. TERIPARATIDE [Suspect]
     Dosage: 20 UG, QD
     Route: 065
     Dates: end: 20111217
  4. TERIPARATIDE [Suspect]
     Dosage: 20 UG, QD
     Route: 065
  5. TERIPARATIDE [Suspect]
     Dosage: 20 UG, QD
     Route: 065
  6. OXYGEN [Concomitant]
     Indication: PRODUCT USED FOR UNKNOWN INDICATION
     Route: 065

REACTIONS (26)
  - Cardiac valve disease [Unknown]
  - Dry mouth [Unknown]
  - Pollakiuria [Unknown]
  - Sensation of foreign body [Unknown]
  - Throat tightness [Unknown]
  - Dysphonia [Recovering/Resolving]
  - Dysphagia [Unknown]
  - Abnormal faeces [Unknown]
  - Abdominal distension [Unknown]
  - Injection site mass [Recovering/Resolving]
  - Weight increased [Unknown]
  - Chronic obstructive pulmonary disease [Not Recovered/Not Resolved]
  - Lung disorder [Not Recovered/Not Resolved]
  - Feeling abnormal [Unknown]
  - Palpitations [Unknown]
  - Thirst [Unknown]
  - Feeling abnormal [Unknown]
  - Fatigue [Unknown]
  - Drug intolerance [Unknown]
  - Fall [Unknown]
  - Malaise [Unknown]
  - Night sweats [Unknown]
  - Dyspepsia [Not Recovered/Not Resolved]
  - Headache [Recovered/Resolved]
  - Constipation [Unknown]
  - Nausea [Unknown]
